FAERS Safety Report 22366549 (Version 1)
Quarter: 2023Q2

REPORT INFORMATION
  Report Type: Spontaneous
  Country: US (occurrence: None)
  Receive Date: 20230524
  Receipt Date: 20230524
  Transmission Date: 20230722
  Serious: Yes (Hospitalization)
  Sender: FDA-Public Use
  Company Number: None

PATIENT
  Age: 62 Year
  Sex: Female
  Weight: 86.1 kg

DRUGS (1)
  1. OZEMPIC [Suspect]
     Active Substance: SEMAGLUTIDE
     Dosage: FREQUENCY : WEEKLY;?
     Route: 058
     Dates: start: 20220527, end: 20230519

REACTIONS (7)
  - Abdominal pain upper [None]
  - Abdominal pain upper [None]
  - Pain [None]
  - Back pain [None]
  - Nausea [None]
  - Vomiting [None]
  - Pancreatitis acute [None]

NARRATIVE: CASE EVENT DATE: 20230521
